FAERS Safety Report 17595870 (Version 1)
Quarter: 2020Q1

REPORT INFORMATION
  Report Type: Spontaneous
  Country: US (occurrence: US)
  Receive Date: 20200329
  Receipt Date: 20200329
  Transmission Date: 20200409
  Serious: No
  Sender: FDA-Public Use
  Company Number: US-TAKEDA-2020TUS015417

PATIENT
  Age: 72 Year
  Sex: Female
  Weight: 59.41 kg

DRUGS (4)
  1. LEVOTHYROXINE. [Concomitant]
     Active Substance: LEVOTHYROXINE
     Indication: THYROID DISORDER
     Dosage: 137 MICROGRAM
  2. LEVOTHYROXINE. [Concomitant]
     Active Substance: LEVOTHYROXINE
     Dosage: 125 MICROGRAM
  3. ENTYVIO [Suspect]
     Active Substance: VEDOLIZUMAB
     Indication: CROHN^S DISEASE
     Dosage: 300 MILLIGRAM
     Route: 042
     Dates: start: 20200211
  4. RISEDRONATE [Concomitant]
     Active Substance: RISEDRONATE SODIUM
     Indication: OSTEOPOROSIS
     Dosage: 150 MILLIGRAM, MONTHLY

REACTIONS (6)
  - Skin sensitisation [Unknown]
  - Perioral dermatitis [Unknown]
  - Oral discomfort [Unknown]
  - Lip swelling [Unknown]
  - Urticaria [Not Recovered/Not Resolved]
  - Oropharyngeal pain [Unknown]
